FAERS Safety Report 21878746 (Version 1)
Quarter: 2023Q1

REPORT INFORMATION
  Report Type: Spontaneous
  Country: GB (occurrence: GB)
  Receive Date: 20230118
  Receipt Date: 20230118
  Transmission Date: 20230417
  Serious: Yes (Hospitalization, Other)
  Sender: FDA-Public Use
  Company Number: None

PATIENT
  Age: 75 Year
  Sex: Female

DRUGS (5)
  1. DOXYCYCLINE [Suspect]
     Active Substance: DOXYCYCLINE
     Dosage: 200MG DAILY FOR ONE DAY AND 100MG DAILY FOR 6 DAYS
     Dates: start: 20230103
  2. AMOXICILLIN [Suspect]
     Active Substance: AMOXICILLIN
     Dosage: 500 MG, 3X/DAY
     Dates: start: 20221219
  3. CEPHALEXIN [Suspect]
     Active Substance: CEPHALEXIN
     Dosage: 500 MG, 2X/DAY
     Dates: start: 20230113
  4. DOXAZOSIN [Suspect]
     Active Substance: DOXAZOSIN MESYLATE
     Dosage: 8 MG OM
  5. LISINOPRIL [Suspect]
     Active Substance: LISINOPRIL
     Dosage: 30 MG, OM

REACTIONS (1)
  - Jaundice [Recovering/Resolving]

NARRATIVE: CASE EVENT DATE: 20230114
